FAERS Safety Report 5481420-3 (Version None)
Quarter: 2007Q4

REPORT INFORMATION
  Report Type: 
  Country: None (occurrence: None)
  Receive Date: 20071010
  Receipt Date: 20071004
  Transmission Date: 20080405
  Serious: Yes (Other)
  Sender: FDA-Public Use
  Company Number: A0686942A

PATIENT
  Age: 24 Year
  Sex: Male

DRUGS (7)
  1. LAMIVUDINE [Suspect]
  2. BACTRIM [Suspect]
  3. ETHAMBUTOL HCL [Suspect]
     Dosage: 800MG PER DAY
  4. ZITHROMAX [Suspect]
     Dosage: 600MG PER DAY
  5. REYATAZ [Suspect]
     Dosage: 300MG PER DAY
  6. VIDEX [Suspect]
     Dosage: 250MG PER DAY
  7. KALETRA [Suspect]

REACTIONS (7)
  - ABDOMINAL PAIN [None]
  - GASTRITIS [None]
  - GASTROINTESTINAL MOTILITY DISORDER [None]
  - HEPATOMEGALY [None]
  - NAUSEA [None]
  - VOMITING [None]
  - WEIGHT DECREASED [None]
